FAERS Safety Report 7977367 (Version 2)
Quarter: 2012Q4

REPORT INFORMATION
  Report Type: 
  Country: US (occurrence: US)
  Receive Date: 20110607
  Receipt Date: 20121102
  Transmission Date: 20130627
  Serious: No
  Sender: FDA-Public Use
  Company Number: US-ASTRAZENECA-2011SE03513

PATIENT
  Age: 51 Year
  Sex: Female
  Weight: 88.5 kg

DRUGS (7)
  1. NEXIUM [Suspect]
     Indication: GASTROOESOPHAGEAL REFLUX DISEASE
     Route: 048
  2. PRILOSEC [Suspect]
     Indication: GASTROOESOPHAGEAL REFLUX DISEASE
     Route: 048
  3. PREVACID [Suspect]
     Route: 065
  4. DULERA [Concomitant]
     Indication: ASTHMA
  5. SENTESA [Concomitant]
  6. SINGULAIR [Concomitant]
  7. GENERIC SYNTHROID [Concomitant]
     Indication: THYROID DISORDER

REACTIONS (5)
  - Muscle spasms [Unknown]
  - Aphonia [Unknown]
  - Diarrhoea [Unknown]
  - Urticaria [Unknown]
  - Drug ineffective [Unknown]
